FAERS Safety Report 19712681 (Version 4)
Quarter: 2023Q1

REPORT INFORMATION
  Report Type: Spontaneous
  Country: FR (occurrence: FR)
  Receive Date: 20210816
  Receipt Date: 20230315
  Transmission Date: 20230418
  Serious: Yes (Other)
  Sender: FDA-Public Use
  Company Number: FR-BRISTOL-MYERS SQUIBB COMPANY-BMS-2021-081208

PATIENT
  Age: 48 Year
  Sex: Male

DRUGS (4)
  1. ATAZANAVIR SULFATE [Interacting]
     Active Substance: ATAZANAVIR SULFATE
     Indication: HIV infection
     Dosage: UNK
  2. VIDEX [Interacting]
     Active Substance: DIDANOSINE
     Indication: HIV infection
     Dosage: 400 MG/DAY?400 MILLIGRAM, RECEIVED FOR A DURATION OF 5 YEARS
  3. RITONAVIR [Interacting]
     Active Substance: RITONAVIR
     Indication: HIV infection
  4. TENOFOVIR DISOPROXIL [Interacting]
     Active Substance: TENOFOVIR DISOPROXIL
     Indication: HIV infection

REACTIONS (2)
  - Retinopathy [Not Recovered/Not Resolved]
  - Drug interaction [Not Recovered/Not Resolved]
